FAERS Safety Report 9093698 (Version 1)
Quarter: 2013Q1

REPORT INFORMATION
  Report Type: Report from Study
  Country: US (occurrence: US)
  Receive Date: 20130131
  Receipt Date: 20130131
  Transmission Date: 20140127
  Serious: No
  Sender: FDA-Public Use
  Company Number: US-ABBOTT-12P-163-1010096-00

PATIENT
  Sex: Female
  Weight: 77.18 kg

DRUGS (3)
  1. HUMIRA [Suspect]
     Indication: HIDRADENITIS
     Route: 058
     Dates: start: 20121028
  2. UNKNOWN BIRTH CONTROL [Concomitant]
     Indication: CONTRACEPTION
  3. WELLBUTRIN [Concomitant]
     Indication: SMOKING CESSATION THERAPY
     Dates: start: 201204

REACTIONS (1)
  - Injection site pain [Not Recovered/Not Resolved]
